FAERS Safety Report 4559168-9 (Version None)
Quarter: 2005Q1

REPORT INFORMATION
  Report Type: 
  Country: None (occurrence: None)
  Receive Date: 20050120
  Receipt Date: 20050120
  Transmission Date: 20050727
  Serious: Yes (Hospitalization)
  Sender: FDA-Public Use
  Company Number: None

PATIENT

DRUGS (2)
  1. METOPROLOL SUCCINATE [Suspect]
     Dosage: 100 MG PO BID
     Route: 048
  2. DILTIAZEM EXT. REL. [Suspect]
     Dosage: 300 MG PO QD
     Route: 048

REACTIONS (3)
  - BRADYCARDIA [None]
  - HYPOTENSION [None]
  - SYNCOPE [None]
